FAERS Safety Report 16991121 (Version 2)
Quarter: 2019Q4

REPORT INFORMATION
  Report Type: Spontaneous
  Country: AU (occurrence: AU)
  Receive Date: 20191104
  Receipt Date: 20191127
  Transmission Date: 20200122
  Serious: No
  Sender: FDA-Public Use
  Company Number: AU-SA-2019SA300708

PATIENT

DRUGS (1)
  1. LEMTRADA [Suspect]
     Active Substance: ALEMTUZUMAB
     Indication: ENCEPHALITIS AUTOIMMUNE
     Dosage: UNK UNK, UNK

REACTIONS (1)
  - Product use in unapproved indication [Unknown]
